FAERS Safety Report 9539569 (Version 1)
Quarter: 2013Q3

REPORT INFORMATION
  Report Type: Spontaneous
  Country: US (occurrence: US)
  Receive Date: 20130920
  Receipt Date: 20130920
  Transmission Date: 20140515
  Serious: Yes (Hospitalization)
  Sender: FDA-Public Use
  Company Number: US-NAPPMUNDI-USA-2011-0080179

PATIENT
  Age: 85 Year
  Sex: Male

DRUGS (2)
  1. BUTRANS [Suspect]
     Indication: PAIN
     Dosage: 20 MCG, Q1H
  2. HYDROCODONE [Suspect]
     Indication: PAIN

REACTIONS (2)
  - Sedation [Recovering/Resolving]
  - Unevaluable event [Unknown]
